FAERS Safety Report 6851249-X (Version None)
Quarter: 2010Q3

REPORT INFORMATION
  Report Type: 
  Country: None (occurrence: None)
  Receive Date: 20100717
  Receipt Date: 20080111
  Transmission Date: 20110219
  Serious: No
  Sender: FDA-Public Use
  Company Number: US-PFIZER INC-2008004813

PATIENT
  Sex: Female
  Weight: 88.6 kg

DRUGS (3)
  1. CHANTIX [Suspect]
     Indication: SMOKING CESSATION THERAPY
     Dates: start: 20080101
  2. SYNTHROID [Concomitant]
  3. PREVACID [Concomitant]

REACTIONS (1)
  - DYSGEUSIA [None]
